FAERS Safety Report 6241830-3 (Version None)
Quarter: 2009Q2

REPORT INFORMATION
  Report Type: 
  Country: None (occurrence: None)
  Receive Date: 20090617
  Receipt Date: 20071121
  Transmission Date: 20091009
  Serious: No
  Sender: FDA-Public Use
  Company Number: 269921

PATIENT
  Age: 53 Year
  Sex: Male

DRUGS (2)
  1. LEVEMIR [Suspect]
     Indication: TYPE 1 DIABETES MELLITUS
     Dosage: 20 IU, QD, SUBCUTANEOUS ; 24 IU, QD, SUBCUTANEOUS ; 20 IU, QD, SUBCUTANEOUS
     Route: 058
     Dates: start: 20071001
  2. HUMALOG /00030501/ (INSULIN) [Concomitant]

REACTIONS (2)
  - BLOOD GLUCOSE FLUCTUATION [None]
  - NASAL CONGESTION [None]
